FAERS Safety Report 18138792 (Version 1)
Quarter: 2020Q3

REPORT INFORMATION
  Report Type: Report from Study
  Country: CA (occurrence: CA)
  Receive Date: 20200812
  Receipt Date: 20200812
  Transmission Date: 20201103
  Serious: Yes (Disabling)
  Sender: FDA-Public Use
  Company Number: PHHY2019CA025254

PATIENT
  Age: 48 Year
  Sex: Female

DRUGS (3)
  1. ERELZI [Suspect]
     Active Substance: ETANERCEPT-SZZS
     Indication: RHEUMATOID ARTHRITIS
     Dosage: 50 MG, QW
     Route: 058
     Dates: start: 20181012
  2. ERELZI [Suspect]
     Active Substance: ETANERCEPT-SZZS
     Dosage: 50 MG, QW
     Route: 058
     Dates: start: 20190125
  3. ERELZI [Suspect]
     Active Substance: ETANERCEPT-SZZS
     Dosage: UNK
     Route: 065
     Dates: start: 202007

REACTIONS (10)
  - Dysstasia [Unknown]
  - Obesity [Unknown]
  - General physical health deterioration [Unknown]
  - Balance disorder [Unknown]
  - Peripheral swelling [Unknown]
  - Pain [Unknown]
  - Gait disturbance [Unknown]
  - Contusion [Unknown]
  - Arthropathy [Unknown]
  - Pain in extremity [Unknown]

NARRATIVE: CASE EVENT DATE: 20190131
